FAERS Safety Report 5901837-X (Version None)
Quarter: 2008Q3

REPORT INFORMATION
  Report Type: 
  Country: None (occurrence: None)
  Receive Date: 20080924
  Receipt Date: 20080922
  Transmission Date: 20090109
  Serious: Yes (Life-Threatening, Hospitalization)
  Sender: FDA-Public Use
  Company Number: 2008-03514

PATIENT
  Age: 54 Year
  Sex: Male
  Weight: 60 kg

DRUGS (4)
  1. VELCADE [Suspect]
     Indication: DRUG USE FOR UNKNOWN INDICATION
     Dosage: 2.2 MG, INTRAVENOUS
     Route: 042
     Dates: start: 20080319, end: 20080319
  2. ACYCLOVIR [Concomitant]
  3. DEXAMETHASONE [Concomitant]
  4. DOLASETRON MESILATE (DOLASETRON MESILATE) [Concomitant]

REACTIONS (3)
  - HEADACHE [None]
  - PLATELET COUNT DECREASED [None]
  - SUBDURAL HAEMATOMA [None]
